FAERS Safety Report 11787249 (Version 1)
Quarter: 2015Q4

REPORT INFORMATION
  Report Type: Spontaneous
  Country: JP (occurrence: JP)
  Receive Date: 20151130
  Receipt Date: 20151130
  Transmission Date: 20160305
  Serious: Yes (Other)
  Sender: FDA-Public Use
  Company Number: JP-WATSON-2015-09437

PATIENT
  Age: 69 Year
  Sex: Female

DRUGS (5)
  1. BOSENTAN (UNKNOWN) [Suspect]
     Active Substance: BOSENTAN
     Dosage: 62.5 MG, DAILY
     Route: 065
  2. URSODEOXYCHOLIC ACID (UNKNOWN) [Suspect]
     Active Substance: URSODIOL
     Dosage: 600 MG, DAILY
     Route: 048
     Dates: start: 201110
  3. BETAMETHASONE. [Concomitant]
     Active Substance: BETAMETHASONE
     Indication: ARTHRALGIA
     Dosage: 0.25 MG, DAILY
     Route: 065
     Dates: start: 2008
  4. BOSENTAN (UNKNOWN) [Suspect]
     Active Substance: BOSENTAN
     Indication: PULMONARY ARTERIAL HYPERTENSION
     Dosage: 125 MG, DAILY
     Route: 065
     Dates: start: 201107
  5. URSODEOXYCHOLIC ACID (UNKNOWN) [Suspect]
     Active Substance: URSODIOL
     Indication: DRUG TOXICITY PROPHYLAXIS
     Dosage: 300 MG, DAILY
     Route: 048

REACTIONS (2)
  - Off label use [Unknown]
  - Hepatotoxicity [Recovered/Resolved]
